FAERS Safety Report 24326302 (Version 1)
Quarter: 2024Q3

REPORT INFORMATION
  Report Type: Spontaneous
  Country: US (occurrence: US)
  Receive Date: 20240917
  Receipt Date: 20240917
  Transmission Date: 20241016
  Serious: Yes (Other)
  Sender: BRAINTREE
  Company Number: US-BRAINTREE LABORATORIES, INC.-2024BTE00578

PATIENT
  Sex: Female

DRUGS (1)
  1. SUTAB [Suspect]
     Active Substance: MAGNESIUM SULFATE\POTASSIUM CHLORIDE\SODIUM SULFATE
     Dosage: 2 X 12 TABLETS, 1X
     Dates: start: 20240811, end: 20240812

REACTIONS (6)
  - Loss of consciousness [Unknown]
  - Fall [Unknown]
  - Clavicle fracture [Unknown]
  - Dizziness [Unknown]
  - Dehydration [Unknown]
  - Electrolyte depletion [Unknown]

NARRATIVE: CASE EVENT DATE: 20240812
